FAERS Safety Report 25811846 (Version 1)
Quarter: 2025Q3

REPORT INFORMATION
  Report Type: Other
  Country: MD (occurrence: MD)
  Receive Date: 20250917
  Receipt Date: 20250917
  Transmission Date: 20251020
  Serious: Yes (Hospitalization)
  Sender: MACLEODS
  Company Number: MD-MACLEODS PHARMA-MAC2025055219

PATIENT

DRUGS (5)
  1. PYRAZINAMIDE [Suspect]
     Active Substance: PYRAZINAMIDE
     Indication: Pulmonary tuberculosis
     Dosage: 4 TAB PER DAY
     Route: 048
     Dates: start: 20250306, end: 20250306
  2. RIFAPENTINE [Suspect]
     Active Substance: RIFAPENTINE
     Indication: Pulmonary tuberculosis
     Dosage: 4 TAB PER DAY
     Route: 048
     Dates: start: 20250306, end: 20250306
  3. ISONIAZID [Suspect]
     Active Substance: ISONIAZID
     Indication: Pulmonary tuberculosis
     Dosage: 1 TAB PER DAY
     Route: 048
     Dates: start: 20250306, end: 20250312
  4. MOXIFLOXACIN HYDROCHLORIDE [Suspect]
     Active Substance: MOXIFLOXACIN HYDROCHLORIDE
     Indication: Pulmonary tuberculosis
     Dosage: 1 TAB OF 400 MG PER DAY
     Route: 048
     Dates: start: 20250306, end: 20250312
  5. DIETARY SUPPLEMENT\HERBALS\MILK THISTLE [Concomitant]
     Active Substance: MILK THISTLE
     Indication: Hepatitis
     Dosage: 1 CAPS TWICE PER DAY
     Route: 048
     Dates: start: 20250306, end: 20250410

REACTIONS (1)
  - Drug-induced liver injury [Recovering/Resolving]

NARRATIVE: CASE EVENT DATE: 20250312
